FAERS Safety Report 8713988 (Version 2)
Quarter: 2013Q1

REPORT INFORMATION
  Report Type: Spontaneous
  Country: US (occurrence: None)
  Receive Date: 20120724
  Receipt Date: 20121018
  Transmission Date: 20140127
  Serious: No
  Sender: FDA-Public Use
  Company Number: 2012P1048645

PATIENT
  Age: 52 Year
  Sex: Female
  Weight: 84.82 kg

DRUGS (10)
  1. FENTANYL [Suspect]
     Indication: OSTEOARTHRITIS
     Dosage: 1 PATCH;Q72H;TDER
     Route: 062
     Dates: start: 1998
  2. FENTANYL [Suspect]
     Indication: FIBROMYALGIA
     Dosage: 1 PATCH;Q72H;TDER
     Route: 062
     Dates: start: 1998
  3. FENTANYL [Suspect]
     Indication: NEUROPATHY PERIPHERAL
     Dosage: 1 PATCH;Q72H;TDER
     Route: 062
     Dates: start: 1998
  4. SYNTHROID [Concomitant]
  5. PROPRANOLOL [Concomitant]
  6. DEXILANT [Concomitant]
  7. PROBIOTICS [Concomitant]
  8. MULTI-VITAMIN [Concomitant]
  9. FISH OIL [Concomitant]
  10. ACAI [Concomitant]

REACTIONS (8)
  - Neuropathy peripheral [None]
  - Product adhesion issue [None]
  - Wrong technique in drug usage process [None]
  - Nausea [None]
  - Vomiting [None]
  - Drug ineffective [None]
  - Incorrect product storage [None]
  - Product quality issue [None]
